FAERS Safety Report 4528701-5 (Version None)
Quarter: 2004Q4

REPORT INFORMATION
  Report Type: 
  Country: None (occurrence: None)
  Receive Date: 20041202
  Receipt Date: 20040810
  Transmission Date: 20050328
  Serious: No
  Sender: FDA-Public Use
  Company Number: 200418766BWH

PATIENT
  Age: 86 Year
  Sex: Male

DRUGS (3)
  1. LEVITRA [Suspect]
     Dosage: 10 MG, ONCE, ORAL
     Route: 048
     Dates: start: 20040624
  2. TRICOR [Concomitant]
  3. FOLIC ACID [Concomitant]

REACTIONS (1)
  - ERECTILE DYSFUNCTION [None]
